FAERS Safety Report 9450994 (Version 1)
Quarter: 2013Q3

REPORT INFORMATION
  Report Type: Spontaneous
  Country: DE (occurrence: None)
  Receive Date: 20130807
  Receipt Date: 20130807
  Transmission Date: 20140515
  Serious: Yes (Hospitalization, Other)
  Sender: FDA-Public Use
  Company Number: AUR-APL-2013-06351

PATIENT
  Age: 1 Day
  Sex: Male
  Weight: 3.32 kg

DRUGS (2)
  1. PAROXETINE (PAROXETINE) [Suspect]
     Indication: ILL-DEFINED DISORDER
     Dosage: 60 MG 1 IN 1 D
     Dates: start: 20071109, end: 20080810
  2. CLONAZEPAM [Suspect]
     Indication: ILL-DEFINED DISORDER
     Dates: start: 20071109, end: 20080810

REACTIONS (3)
  - Maternal drugs affecting foetus [None]
  - Myoclonus [None]
  - Hypertonia neonatal [None]
